FAERS Safety Report 13310325 (Version 1)
Quarter: 2017Q1

REPORT INFORMATION
  Report Type: Spontaneous
  Country: US (occurrence: US)
  Receive Date: 20170308
  Receipt Date: 20170308
  Transmission Date: 20170428
  Serious: Yes (Death)
  Sender: FDA-Public Use
  Company Number: None

PATIENT
  Age: 80 Year
  Sex: Male

DRUGS (2)
  1. SUTENT [Suspect]
     Active Substance: SUNITINIB MALATE
     Indication: RENAL CANCER
     Dosage: 1 DAILY ON DAYS 1-28 EVERY 42 DAYS
     Route: 048
     Dates: start: 20160923, end: 20170301
  2. SUTENT [Suspect]
     Active Substance: SUNITINIB MALATE
     Indication: MALIGNANT NEOPLASM OF UNKNOWN PRIMARY SITE
     Dosage: 1 DAILY ON DAYS 1-28 EVERY 42 DAYS
     Route: 048
     Dates: start: 20160923, end: 20170301

REACTIONS (1)
  - Death [None]

NARRATIVE: CASE EVENT DATE: 20170301
